FAERS Safety Report 12191083 (Version 1)
Quarter: 2016Q1

REPORT INFORMATION
  Report Type: Report from Study
  Country: CA (occurrence: CA)
  Receive Date: 20160318
  Receipt Date: 20160318
  Transmission Date: 20160526
  Serious: Yes (Hospitalization)
  Sender: FDA-Public Use
  Company Number: CA-JNJFOC-20160310857

PATIENT
  Age: 37 Year
  Sex: Male
  Weight: 59 kg

DRUGS (1)
  1. REMICADE [Suspect]
     Active Substance: INFLIXIMAB
     Indication: ANKYLOSING SPONDYLITIS
     Route: 042
     Dates: start: 20151214

REACTIONS (4)
  - Heart rate increased [Unknown]
  - Oropharyngeal candidiasis [Unknown]
  - Pleural effusion [Unknown]
  - Hypotension [Unknown]

NARRATIVE: CASE EVENT DATE: 20160226
